FAERS Safety Report 7130441-3 (Version None)
Quarter: 2010Q4

REPORT INFORMATION
  Report Type: 
  Country: None (occurrence: None)
  Receive Date: 20101201
  Receipt Date: 20101117
  Transmission Date: 20110411
  Serious: Yes (Hospitalization)
  Sender: FDA-Public Use
  Company Number: ES-ALEXION PHARMACEUTICALS INC.-A201001520

PATIENT

DRUGS (8)
  1. SOLIRIS [Suspect]
     Indication: HAEMOLYTIC URAEMIC SYNDROME
     Dosage: 600 MG, UNK
     Route: 042
     Dates: start: 20100923
  2. CAPTOPRIL [Concomitant]
     Indication: HYPERTENSION
  3. LABETALOL HCL [Concomitant]
     Indication: HYPERTENSION
  4. NIFEDIPINE [Concomitant]
     Indication: HYPERTENSION
  5. CALCIUM [Concomitant]
     Indication: PROPHYLAXIS
  6. VITAMIN A [Concomitant]
     Indication: PROPHYLAXIS
  7. IRON [Concomitant]
  8. ERYTHROPOIETIN [Concomitant]

REACTIONS (4)
  - ABDOMINAL DISTENSION [None]
  - INTESTINAL OBSTRUCTION [None]
  - URINARY TRACT INFECTION [None]
  - VISION BLURRED [None]
